FAERS Safety Report 17135230 (Version 2)
Quarter: 2020Q1

REPORT INFORMATION
  Report Type: Spontaneous
  Country: BE (occurrence: BE)
  Receive Date: 20191210
  Receipt Date: 20200101
  Transmission Date: 20200409
  Serious: Yes (Other)
  Sender: FDA-Public Use
  Company Number: NVSC2019BE062577

PATIENT
  Sex: Male

DRUGS (1)
  1. COSENTYX [Suspect]
     Active Substance: SECUKINUMAB
     Indication: PSORIASIS
     Dosage: UNK
     Route: 065
     Dates: start: 201608

REACTIONS (5)
  - Bone marrow failure [Unknown]
  - Monocytosis [Unknown]
  - Myelodysplastic syndrome [Unknown]
  - Leukocytosis [Unknown]
  - Chronic myeloid leukaemia [Unknown]
